FAERS Safety Report 15103308 (Version 1)
Quarter: 2018Q3

REPORT INFORMATION
  Report Type: Spontaneous
  Country: CA (occurrence: CA)
  Receive Date: 20180703
  Receipt Date: 20180703
  Transmission Date: 20181010
  Serious: Yes (Hospitalization, Other)
  Sender: FDA-Public Use
  Company Number: CA-MYLANLABS-2018M1049130

PATIENT
  Age: 14 Year

DRUGS (1)
  1. VALPROIC ACID. [Suspect]
     Active Substance: VALPROIC ACID
     Indication: SEIZURE
     Dosage: UNK

REACTIONS (5)
  - Abdominal pain [Unknown]
  - Pancreatitis acute [Unknown]
  - Steatorrhoea [Unknown]
  - Weight decreased [Unknown]
  - Pancreatitis chronic [Unknown]
